FAERS Safety Report 8464565-5 (Version None)
Quarter: 2012Q2

REPORT INFORMATION
  Report Type: 
  Country: None (occurrence: None)
  Receive Date: 20120323
  Receipt Date: 20111221
  Transmission Date: 20120825
  Serious: Yes (Hospitalization)
  Sender: FDA-Public Use
  Company Number: 163-21880-11101980

PATIENT
  Age: 65 Year
  Sex: Male
  Weight: 86.1834 kg

DRUGS (9)
  1. REVLIMID [Suspect]
     Indication: MULTIPLE MYELOMA
     Dosage: 5 MG, 1 IN 2 D, PO, 5 MG, 1 IN 2 D, PO
     Route: 048
     Dates: start: 20101001, end: 20110501
  2. REVLIMID [Suspect]
     Indication: MULTIPLE MYELOMA
     Dosage: 5 MG, 1 IN 2 D, PO, 5 MG, 1 IN 2 D, PO
     Route: 048
     Dates: start: 20110801
  3. NEPHROCAPS (NEPHROCAPS) [Concomitant]
  4. VANCOMYCIN [Concomitant]
  5. METRONIDAZOLE [Concomitant]
  6. CARVEDILOL [Concomitant]
  7. GABAPENTIN [Concomitant]
  8. VITAMIN D [Concomitant]
  9. RENVELA [Concomitant]

REACTIONS (3)
  - BACTERIAL INFECTION [None]
  - CLOSTRIDIUM DIFFICILE COLITIS [None]
  - DEVICE RELATED INFECTION [None]
